FAERS Safety Report 20347549 (Version 1)
Quarter: 2022Q1

REPORT INFORMATION
  Report Type: Spontaneous
  Country: US (occurrence: None)
  Receive Date: 20220117
  Receipt Date: 20220117
  Transmission Date: 20220423
  Serious: Yes (unspecified)
  Sender: FDA-Public Use
  Company Number: None

PATIENT
  Age: 35 Year
  Sex: Male
  Weight: 72.48 kg

DRUGS (1)
  1. PAXLOVID [Suspect]
     Active Substance: NIRMATRELVIR\RITONAVIR
     Indication: COVID-19
     Dosage: FREQUENCY : TWICE A DAY;?
     Route: 048
     Dates: start: 20220107, end: 20220112

REACTIONS (6)
  - Aspartate aminotransferase increased [None]
  - Myalgia [None]
  - Pain [None]
  - Alanine aminotransferase increased [None]
  - Blood creatine phosphokinase increased [None]
  - Rhinorrhoea [None]

NARRATIVE: CASE EVENT DATE: 20220112
